FAERS Safety Report 9817079 (Version 2)
Quarter: 2014Q1

REPORT INFORMATION
  Report Type: Spontaneous
  Country: DE (occurrence: DE)
  Receive Date: 20140114
  Receipt Date: 20140114
  Transmission Date: 20141002
  Serious: Yes (Other)
  Sender: FDA-Public Use
  Company Number: CHPA2013DE018672

PATIENT
  Age: 75 Year
  Sex: Male

DRUGS (6)
  1. LAMISIL ONCE [Suspect]
     Indication: ONYCHOMYCOSIS
     Dosage: UNK, ONCE/SINGLE
     Route: 061
     Dates: start: 2013, end: 2013
  2. LAMISIL ONCE [Suspect]
     Indication: OFF LABEL USE
  3. LAMISIL [Suspect]
     Indication: ONYCHOMYCOSIS
     Dosage: UNK
     Route: 061
     Dates: start: 2013, end: 2013
  4. LAMISIL [Suspect]
     Indication: OFF LABEL USE
  5. TERBINAFINE [Suspect]
     Indication: ONYCHOMYCOSIS
     Dosage: UNK
     Route: 048
     Dates: start: 20130601, end: 20130630
  6. TERBINAFINE [Suspect]
     Indication: OFF LABEL USE

REACTIONS (2)
  - Rash [Recovering/Resolving]
  - Psoriasis [Recovering/Resolving]
